FAERS Safety Report 9426780 (Version 1)
Quarter: 2013Q3

REPORT INFORMATION
  Report Type: Spontaneous
  Country: US (occurrence: US)
  Receive Date: 20130730
  Receipt Date: 20130730
  Transmission Date: 20140515
  Serious: Yes (Hospitalization)
  Sender: FDA-Public Use
  Company Number: US-SANOFI-AVENTIS-2013SA011529

PATIENT
  Age: 63 Year
  Sex: Male
  Weight: 108 kg

DRUGS (10)
  1. AMBIEN [Suspect]
     Indication: INSOMNIA
     Dosage: FREQUENCY:QHS
     Route: 048
     Dates: start: 20121021
  2. TRAZODONE [Suspect]
     Indication: INSOMNIA
     Dosage: FREQUENCY:QHS
     Dates: start: 20120515
  3. INVESTIGATIONAL DRUG [Suspect]
     Indication: MYELOFIBROSIS
     Dates: start: 20120723, end: 20120806
  4. INVESTIGATIONAL DRUG [Suspect]
     Indication: MYELOFIBROSIS
     Dates: start: 20120821
  5. LACTULOSE [Concomitant]
     Dates: start: 20101021, end: 20120924
  6. RIFAXIMIN [Concomitant]
     Dates: start: 20101021
  7. LASIX [Concomitant]
  8. NADOLOL [Concomitant]
  9. PREVACID [Concomitant]
  10. MIRTAZAPINE [Concomitant]

REACTIONS (3)
  - Confusional state [Recovered/Resolved]
  - Confusional state [Recovered/Resolved]
  - Confusional state [Recovered/Resolved]
